FAERS Safety Report 6966749-1 (Version None)
Quarter: 2010Q3

REPORT INFORMATION
  Report Type: 
  Country: None (occurrence: None)
  Receive Date: 20100906
  Receipt Date: 20100824
  Transmission Date: 20110219
  Serious: Yes (Other)
  Sender: FDA-Public Use
  Company Number: DE-ELI_LILLY_AND_COMPANY-DE201008007516

PATIENT
  Sex: Female
  Weight: 60 kg

DRUGS (4)
  1. EFFIENT [Suspect]
     Indication: ACUTE MYOCARDIAL INFARCTION
     Dosage: 5 MG, UNKNOWN
     Route: 048
     Dates: start: 20100501
  2. SORTIS [Concomitant]
     Dosage: 20 MG, UNKNOWN
     Route: 048
     Dates: start: 20100501
  3. PANTOPRAZOLE SODIUM [Concomitant]
     Dosage: 20 MG, UNKNOWN
     Route: 048
     Dates: start: 20100501
  4. VERAPAMIL [Concomitant]
     Dosage: 40 MG, UNKNOWN
     Route: 048
     Dates: start: 20100501

REACTIONS (2)
  - HAEMATOMA [None]
  - PARAESTHESIA [None]
